FAERS Safety Report 11975304 (Version 1)
Quarter: 2016Q1

REPORT INFORMATION
  Report Type: Other
  Country: US (occurrence: US)
  Receive Date: 20160128
  Receipt Date: 20160128
  Transmission Date: 20160526
  Serious: Yes (Other)
  Sender: FDA-Public Use
  Company Number: US-GUTHY-RENKER LLC-1047063

PATIENT
  Age: 55 Year
  Sex: Female

DRUGS (1)
  1. PRINCIPAL SECRET ADVANCED WITH HYDROSPHERES CONTINUOUS MOISTURE SPF8 [Suspect]
     Active Substance: OCTINOXATE\OCTISALATE
     Indication: PROPHYLAXIS AGAINST SOLAR RADIATION
     Route: 061
     Dates: start: 20150501

REACTIONS (3)
  - Bronchospasm [Recovered/Resolved]
  - Drug hypersensitivity [None]
  - Asthma [None]

NARRATIVE: CASE EVENT DATE: 20150501
